FAERS Safety Report 6085516-7 (Version None)
Quarter: 2009Q1

REPORT INFORMATION
  Report Type: 
  Country: None (occurrence: None)
  Receive Date: 20090217
  Receipt Date: 20080729
  Transmission Date: 20090719
  Serious: Yes (Other)
  Sender: FDA-Public Use
  Company Number: US-WYE-H05312608

PATIENT
  Age: 51 Year
  Sex: Male
  Weight: 79.45 kg

DRUGS (1)
  1. ALAVERT [Suspect]
     Indication: HYPERSENSITIVITY
     Dosage: ONE TABLET AS NEEDED, ORAL
     Route: 048
     Dates: start: 20080401

REACTIONS (1)
  - PSYCHOMOTOR HYPERACTIVITY [None]
